FAERS Safety Report 10072715 (Version 1)
Quarter: 2014Q2

REPORT INFORMATION
  Report Type: Spontaneous
  Country: US (occurrence: US)
  Receive Date: 20140411
  Receipt Date: 20140411
  Transmission Date: 20141212
  Serious: No
  Sender: FDA-Public Use
  Company Number: US-PFIZER INC-2014100554

PATIENT
  Age: 66 Year
  Sex: Female
  Weight: 58.96 kg

DRUGS (3)
  1. CELEBREX [Suspect]
     Indication: FIBROMYALGIA
     Dosage: UNK
     Dates: end: 201402
  2. CELEBREX [Suspect]
     Indication: OSTEOARTHRITIS
  3. ZESTRIL [Concomitant]
     Indication: HYPERTENSION
     Dosage: 40 MG, DAILY

REACTIONS (2)
  - Pain [Unknown]
  - Hypertension [Unknown]
